FAERS Safety Report 18620152 (Version 2)
Quarter: 2020Q4

REPORT INFORMATION
  Report Type: Report from Study
  Country: CH (occurrence: CH)
  Receive Date: 20201215
  Receipt Date: 20201223
  Transmission Date: 20210114
  Serious: Yes (Hospitalization, Other)
  Sender: FDA-Public Use
  Company Number: CH-TAKEDA-2020TUS046408

PATIENT
  Age: 73 Year
  Sex: Male
  Weight: 84 kg

DRUGS (41)
  1. MIRTAZAPIN [Concomitant]
     Active Substance: MIRTAZAPINE
     Indication: HEADACHE
     Dosage: 30 MILLIGRAM
     Dates: end: 20191104
  2. PRED FORTE [Concomitant]
     Active Substance: PREDNISOLONE ACETATE
     Dosage: 1 PERCENT
     Dates: start: 20200218, end: 20200224
  3. TOBRADEX [Concomitant]
     Active Substance: DEXAMETHASONE\TOBRAMYCIN
     Dosage: UNK UNK, QD
     Dates: start: 20200225, end: 20200304
  4. ADVATE [Suspect]
     Active Substance: ANTIHEMOPHILIC FACTOR, HUMAN RECOMBINANT
     Indication: PROPHYLAXIS
     Dosage: 2000 UNK
     Route: 042
     Dates: start: 20201202
  5. CANDESARTAN SANDOZ [Concomitant]
     Active Substance: CANDESARTAN
     Indication: HYPERTENSION
     Dosage: 2 DOSAGE FORM, QD
     Dates: start: 20200317, end: 20200322
  6. CARVEDILOL. [Concomitant]
     Active Substance: CARVEDILOL
     Indication: HYPERTENSION
     Dosage: 50 MILLIGRAM, QD
  7. PRED FORTE [Concomitant]
     Active Substance: PREDNISOLONE ACETATE
     Dosage: 1 PERCENT, QD
     Dates: start: 20200310, end: 20200316
  8. ROPIVACAIN ACTAVIS [Concomitant]
     Indication: PAIN
     Dosage: UNK
     Dates: start: 20171025, end: 20171025
  9. TARGIN [Concomitant]
     Active Substance: NALOXONE HYDROCHLORIDE\OXYCODONE HYDROCHLORIDE
     Indication: PAIN
     Dosage: UNK UNK, PRN
     Dates: start: 20190506, end: 201909
  10. TOBRADEX [Concomitant]
     Active Substance: DEXAMETHASONE\TOBRAMYCIN
     Indication: CATARACT
     Dosage: UNK UNK, PRN
     Dates: start: 20200211, end: 20200217
  11. ADVATE [Suspect]
     Active Substance: ANTIHEMOPHILIC FACTOR, HUMAN RECOMBINANT
     Indication: PROPHYLAXIS
     Dosage: 2000 UNK
     Route: 042
     Dates: start: 20201202
  12. DIAMOX SEQUELS [Concomitant]
     Active Substance: ACETAZOLAMIDE
     Indication: CATARACT
     Dosage: 250 MILLIGRAM, BID
     Dates: start: 20200211, end: 20200211
  13. PRED FORTE [Concomitant]
     Active Substance: PREDNISOLONE ACETATE
     Dosage: 1 PERCENT, BID
     Dates: start: 20200303, end: 20200309
  14. PRED FORTE [Concomitant]
     Active Substance: PREDNISOLONE ACETATE
     Dosage: 1 PERCENT, QD
     Dates: start: 20200320, end: 20200327
  15. REMERON [Concomitant]
     Active Substance: MIRTAZAPINE
     Indication: HEADACHE
     Dosage: 7.5 MILLIGRAM, QD
     Dates: start: 20161130
  16. VASCORD [VERAPAMIL HYDROCHLORIDE] [Concomitant]
     Indication: HYPERTENSION
     Dosage: 40 MILLIGRAM, QD
     Dates: start: 20201004
  17. ADVATE [Suspect]
     Active Substance: ANTIHEMOPHILIC FACTOR, HUMAN RECOMBINANT
     Indication: PRODUCT USED FOR UNKNOWN INDICATION
     Dosage: 2000 UNK
     Route: 065
  18. DULCOLAX (BISACODYL) [Concomitant]
     Active Substance: BISACODYL
     Indication: CONSTIPATION
     Dosage: UNK
  19. NEXIUM I.V. [Concomitant]
     Active Substance: ESOMEPRAZOLE SODIUM
     Indication: GASTROINTESTINAL DISORDER
     Dosage: 40 MILLIGRAM, BID
     Dates: end: 202003
  20. PRED FORTE [Concomitant]
     Active Substance: PREDNISOLONE ACETATE
     Dosage: 1 PERCENT, BID
     Dates: start: 20200312, end: 20200319
  21. YELLOX [Concomitant]
     Active Substance: BROMFENAC SODIUM
     Dosage: 0.9 MILLIGRAM PER MILLILITRE
     Dates: start: 20200225, end: 20200308
  22. ADVATE [Suspect]
     Active Substance: ANTIHEMOPHILIC FACTOR, HUMAN RECOMBINANT
     Indication: PROPHYLAXIS
     Dosage: 2000 UNK
     Route: 042
     Dates: start: 20201202
  23. MEDROL [Concomitant]
     Active Substance: METHYLPREDNISOLONE
     Indication: PAIN
     Dosage: UNK
     Dates: start: 20171025, end: 20171025
  24. PRED FORTE [Concomitant]
     Active Substance: PREDNISOLONE ACETATE
     Indication: CATARACT
     Dosage: 1 PERCENT
     Dates: start: 20200225, end: 20200302
  25. TOBRADEX [Concomitant]
     Active Substance: DEXAMETHASONE\TOBRAMYCIN
     Dosage: UNK
     Dates: start: 20200211, end: 20200217
  26. ENATEC [Concomitant]
     Active Substance: ENALAPRIL MALEATE
     Indication: HYPERTENSION
     Dosage: 25 MILLIGRAM, BID
     Dates: end: 20150323
  27. TRAMAL [Concomitant]
     Active Substance: TRAMADOL
     Indication: PAIN
     Dosage: 100 MILLIGRAM PER MILLILITRE, BID
     Dates: start: 20200928
  28. DIAMOX SEQUELS [Concomitant]
     Active Substance: ACETAZOLAMIDE
     Dosage: 250 UNK
     Dates: start: 20200225, end: 20200225
  29. KALIUM EFFERVESCENS BEZCUKROWY [Concomitant]
     Active Substance: POTASSIUM BICARBONATE\POTASSIUM CITRATE
     Indication: HYPOKALAEMIA
     Dosage: 30 MILLIMOLE, QD
     Dates: start: 20150814, end: 20150817
  30. NOVALGIN [CAFFEINE;PARACETAMOL;PROPYPHENAZONE] [Concomitant]
     Active Substance: ACETAMINOPHEN\CAFFEINE\PROPYPHENAZONE
     Indication: PAIN
     Dosage: 500 MILLIGRAM, PRN
     Dates: start: 20200803, end: 20200928
  31. TRAMAL [Concomitant]
     Active Substance: TRAMADOL
     Dosage: 100 MILLIGRAM, BID
     Dates: start: 20200928
  32. ADVATE [Suspect]
     Active Substance: ANTIHEMOPHILIC FACTOR, HUMAN RECOMBINANT
     Indication: PRODUCT USED FOR UNKNOWN INDICATION
     Dosage: 2000 UNK
     Route: 065
  33. ADVATE [Suspect]
     Active Substance: ANTIHEMOPHILIC FACTOR, HUMAN RECOMBINANT
     Indication: PRODUCT USED FOR UNKNOWN INDICATION
     Dosage: 2000 UNK
     Route: 065
  34. AMLODIPINO [AMLODIPINE] [Concomitant]
     Active Substance: AMLODIPINE BESYLATE
     Indication: HYPERTENSION
     Dosage: 5 MILLIGRAM, QD
     Dates: start: 20120314, end: 20150223
  35. DAFALGAN [Concomitant]
     Active Substance: ACETAMINOPHEN
     Indication: HEADACHE
     Dosage: UNK UNK, QD
     Dates: start: 20160321
  36. CYKLOKAPRON [Concomitant]
     Active Substance: TRANEXAMIC ACID
     Indication: EPISTAXIS
     Dosage: 5 PERCENT, PRN
     Dates: start: 20201008
  37. PRED FORTE [Concomitant]
     Active Substance: PREDNISOLONE ACETATE
     Dosage: 1 PERCENT
     Dates: start: 20200304, end: 20200311
  38. TOBRADEX [Concomitant]
     Active Substance: DEXAMETHASONE\TOBRAMYCIN
     Dosage: UNK
     Dates: start: 20200225, end: 20200304
  39. VASCORD [VERAPAMIL HYDROCHLORIDE] [Concomitant]
     Dosage: UNK
     Dates: start: 20190204, end: 20191104
  40. YELLOX [Concomitant]
     Active Substance: BROMFENAC SODIUM
     Indication: CATARACT
     Dosage: 0.9 MILLIGRAM PER MILLILITRE, BID
     Dates: start: 20200211, end: 20200224
  41. ZOLPIDEM [Concomitant]
     Active Substance: ZOLPIDEM TARTRATE
     Indication: HEADACHE
     Dosage: 10 MILLIGRAM, QD

REACTIONS (6)
  - Hot flush [Recovered/Resolved]
  - Joint swelling [Not Recovered/Not Resolved]
  - Arthritis bacterial [Not Recovered/Not Resolved]
  - Nausea [Recovered/Resolved]
  - Chondrocalcinosis pyrophosphate [Recovering/Resolving]
  - Hyperhidrosis [Recovered/Resolved]

NARRATIVE: CASE EVENT DATE: 20171009
